FAERS Safety Report 6676128-2 (Version None)
Quarter: 2010Q2

REPORT INFORMATION
  Report Type: 
  Country: None (occurrence: None)
  Receive Date: 20100412
  Receipt Date: 20100331
  Transmission Date: 20101027
  Serious: Yes (Other)
  Sender: FDA-Public Use
  Company Number: US-PFIZER INC-2010041498

PATIENT
  Sex: Male
  Weight: 82.5 kg

DRUGS (2)
  1. TIKOSYN [Suspect]
     Indication: ATRIAL FIBRILLATION
     Dosage: 500 UG, 2X/DAY
     Route: 048
     Dates: start: 20040201
  2. CARBIDOPA AND LEVODOPA [Suspect]
     Indication: DEMENTIA WITH LEWY BODIES

REACTIONS (3)
  - DYSKINESIA [None]
  - NERVOUS SYSTEM DISORDER [None]
  - URINARY TRACT INFECTION [None]
